FAERS Safety Report 23060307 (Version 1)
Quarter: 2023Q4

REPORT INFORMATION
  Report Type: Report from Study
  Country: KR (occurrence: KR)
  Receive Date: 20231012
  Receipt Date: 20231012
  Transmission Date: 20240110
  Serious: Yes (Hospitalization)
  Sender: FDA-Public Use
  Company Number: KR-JNJFOC-20231026819

PATIENT
  Age: 76 Year
  Sex: Female
  Weight: 55 kg

DRUGS (10)
  1. TECLISTAMAB [Suspect]
     Active Substance: TECLISTAMAB
     Indication: Plasma cell myeloma
     Route: 058
     Dates: start: 20220622, end: 20221129
  2. TECLISTAMAB [Suspect]
     Active Substance: TECLISTAMAB
     Route: 058
     Dates: start: 20220628, end: 20230918
  3. DARATUMUMAB [Suspect]
     Active Substance: DARATUMUMAB
     Indication: Plasma cell myeloma
     Dosage: 15ML
     Route: 058
     Dates: start: 20220621, end: 20230918
  4. ULTRACET ER SEMI [Concomitant]
     Indication: Pain prophylaxis
     Route: 048
     Dates: start: 20221025
  5. BEAROBAN [Concomitant]
     Indication: Prophylaxis
     Route: 062
     Dates: start: 20221220
  6. TANTUM [BENZYDAMINE HYDROCHLORIDE] [Concomitant]
     Indication: Infection prophylaxis
     Dosage: 15
     Route: 050
     Dates: start: 20230201
  7. METFORMIN HYDROCHLORIDE [Concomitant]
     Active Substance: METFORMIN HYDROCHLORIDE
     Indication: Prophylaxis
     Dosage: 500
     Route: 048
     Dates: start: 20230210
  8. CITOPCIN [CIPROFLOXACIN HYDROCHLORIDE] [Concomitant]
     Indication: Infection prophylaxis
     Dosage: 250
     Route: 048
     Dates: start: 20230216
  9. FLUCONAZOLE [Concomitant]
     Active Substance: FLUCONAZOLE
     Indication: Infection prophylaxis
     Dosage: 50
     Route: 048
     Dates: start: 20230216
  10. VANCOMYCIN HYDROCHLORIDE [Concomitant]
     Active Substance: VANCOMYCIN HYDROCHLORIDE
     Indication: Urinary tract infection
     Dosage: 125
     Route: 048
     Dates: start: 20230905, end: 20230912

REACTIONS (1)
  - Pyelonephritis acute [Not Recovered/Not Resolved]

NARRATIVE: CASE EVENT DATE: 20231008
